FAERS Safety Report 15937484 (Version 2)
Quarter: 2019Q1

REPORT INFORMATION
  Report Type: Spontaneous
  Country: US (occurrence: US)
  Receive Date: 20190208
  Receipt Date: 20190227
  Transmission Date: 20190417
  Serious: Yes (Other)
  Sender: FDA-Public Use
  Company Number: US-ASTRAZENECA-2019SE11308

PATIENT
  Sex: Male
  Weight: 110 kg

DRUGS (5)
  1. PRILOSEC [Suspect]
     Active Substance: OMEPRAZOLE MAGNESIUM
     Route: 048
     Dates: start: 20110321
  2. PRILOSEC [Suspect]
     Active Substance: OMEPRAZOLE MAGNESIUM
     Route: 048
  3. PRILOSEC OTC [Suspect]
     Active Substance: OMEPRAZOLE MAGNESIUM
     Route: 048
  4. LASIX [Concomitant]
     Active Substance: FUROSEMIDE
  5. PRILOSEC OTC [Suspect]
     Active Substance: OMEPRAZOLE MAGNESIUM
     Route: 048
     Dates: start: 20110321

REACTIONS (4)
  - Chronic kidney disease [Unknown]
  - Renal failure [Unknown]
  - Rebound acid hypersecretion [Unknown]
  - Renal injury [Unknown]
